FAERS Safety Report 6541366-6 (Version None)
Quarter: 2010Q1

REPORT INFORMATION
  Report Type: 
  Country: None (occurrence: None)
  Receive Date: 20100118
  Receipt Date: 20100111
  Transmission Date: 20100710
  Serious: Yes (Other)
  Sender: FDA-Public Use
  Company Number: PHHY2009FR50140

PATIENT
  Sex: Female

DRUGS (2)
  1. RASILEZ [Suspect]
  2. DILTIAZEM [Concomitant]

REACTIONS (3)
  - ANURIA [None]
  - BLOOD CREATININE ABNORMAL [None]
  - BLOOD UREA ABNORMAL [None]
